FAERS Safety Report 17139390 (Version 1)
Quarter: 2019Q4

REPORT INFORMATION
  Report Type: Spontaneous
  Country: GB (occurrence: GB)
  Receive Date: 20191211
  Receipt Date: 20191211
  Transmission Date: 20200122
  Serious: Yes (Other)
  Sender: FDA-Public Use
  Company Number: GB-ACCORD-164684

PATIENT
  Age: 32 Year
  Sex: Female
  Weight: 64 kg

DRUGS (3)
  1. PAROXETINE. [Concomitant]
     Active Substance: PAROXETINE
     Dates: start: 20191108
  2. SERTRALINE [Suspect]
     Active Substance: SERTRALINE HYDROCHLORIDE
     Indication: PRODUCT USED FOR UNKNOWN INDICATION
     Dates: start: 20191015
  3. PROMETHAZINE [Concomitant]
     Active Substance: PROMETHAZINE HYDROCHLORIDE
     Dosage: AT NIGHT
     Dates: start: 20191015, end: 20191023

REACTIONS (2)
  - Trismus [Unknown]
  - Pain in jaw [Unknown]

NARRATIVE: CASE EVENT DATE: 20191108
